FAERS Safety Report 8215917-X (Version None)
Quarter: 2012Q1

REPORT INFORMATION
  Report Type: 
  Country: None (occurrence: None)
  Receive Date: 20120316
  Receipt Date: 20120308
  Transmission Date: 20120608
  Serious: Yes (Hospitalization)
  Sender: FDA-Public Use
  Company Number: US-BAYER-2012-022467

PATIENT
  Age: 35 Year
  Sex: Female
  Weight: 76.644 kg

DRUGS (9)
  1. YAZ [Suspect]
     Indication: CONTRACEPTION
     Dosage: UNK
     Dates: start: 20071016, end: 20080420
  2. SINGULAIR [Concomitant]
     Dosage: 10 MG, UNK
     Route: 048
     Dates: start: 20080301
  3. LEVAQUIN [Concomitant]
     Dosage: 500 MG, UNK
     Route: 048
     Dates: start: 20080402
  4. PRILOSEC [Concomitant]
     Dosage: 20 MG, UNK
     Route: 048
  5. ADVAIR DISKUS 100/50 [Concomitant]
     Route: 048
  6. NSAID'S [Concomitant]
     Route: 048
  7. XYZAL [Concomitant]
     Dosage: 5 MG, UNK
     Route: 048
  8. NASACORT [Concomitant]
     Dosage: UNK
     Route: 045
     Dates: start: 20080210
  9. VICODIN [Concomitant]

REACTIONS (6)
  - PAIN [None]
  - EMOTIONAL DISTRESS [None]
  - ANXIETY [None]
  - GENERAL PHYSICAL HEALTH DETERIORATION [None]
  - INJURY [None]
  - PULMONARY EMBOLISM [None]
